FAERS Safety Report 9474100 (Version 2)
Quarter: 2013Q3

REPORT INFORMATION
  Report Type: Spontaneous
  Country: US (occurrence: None)
  Receive Date: 20130820
  Receipt Date: 20130927
  Transmission Date: 20140515
  Serious: Yes (Other)
  Sender: FDA-Public Use
  Company Number: ACO_37927_2013

PATIENT
  Age: 73 Year
  Sex: Male
  Weight: 90.7 kg

DRUGS (13)
  1. AMPYRA [Suspect]
     Indication: MULTIPLE SCLEROSIS
     Route: 048
     Dates: start: 20130724, end: 2013
  2. AMPYRA [Suspect]
     Indication: GAIT DISTURBANCE
     Route: 048
     Dates: start: 20130724, end: 2013
  3. ACETAMINOPHEN (PARACETAMOL) [Concomitant]
  4. LEVOTHYROXINE SODIUM [Concomitant]
  5. LIPITOR (ATORVASTATIN CALCIUM) [Concomitant]
  6. RANITIDINE (RANITIDINE HYDROCHORIDE) [Concomitant]
  7. UROXATRAL (ALFUZOSIN HYDROCHLORIDE) [Concomitant]
  8. OMEPRAZOLE (OMEPRAZOLE) [Concomitant]
  9. TRAZODONE HC1 (TRAZODONE HYDROCHLORIDE) [Concomitant]
  10. FISH OIL (FISH OIL) [Concomitant]
  11. MULTIVITAMIN (VITAMINS NOS) [Concomitant]
  12. PRESERVISION AREDS (ASCORBIC ACID, BETACAROTENE, CUPRIC OXIDE, TOCOPHERYL ACETATE, ZINC OXIDE) [Concomitant]
  13. PROBIOTICS [Concomitant]

REACTIONS (1)
  - Colitis [None]
